FAERS Safety Report 11596896 (Version 2)
Quarter: 2015Q4

REPORT INFORMATION
  Report Type: Report from Study
  Country: DE (occurrence: DE)
  Receive Date: 20151006
  Receipt Date: 20151015
  Transmission Date: 20160304
  Serious: Yes (Other)
  Sender: FDA-Public Use
  Company Number: DE-ABBVIE-15P-062-1472051-00

PATIENT
  Age: 35 Year
  Sex: Female

DRUGS (2)
  1. VIEKIRAX [Suspect]
     Active Substance: OMBITASVIR\PARITAPREVIR\RITONAVIR
     Indication: HEPATITIS C
     Dosage: UNIT DOSE: 25/150/100MG
     Route: 048
     Dates: start: 20150709, end: 20150930
  2. EXVIERA [Suspect]
     Active Substance: DASABUVIR
     Indication: HEPATITIS C
     Route: 048
     Dates: start: 20150709, end: 20150930

REACTIONS (3)
  - Gastric mucosal hypertrophy [Unknown]
  - Fibrosis [Unknown]
  - Inflammation [Unknown]

NARRATIVE: CASE EVENT DATE: 2015
